FAERS Safety Report 6619346-1 (Version None)
Quarter: 2010Q1

REPORT INFORMATION
  Report Type: 
  Country: None (occurrence: None)
  Receive Date: 20100308
  Receipt Date: 20091026
  Transmission Date: 20100710
  Serious: No
  Sender: FDA-Public Use
  Company Number: US-TYCO HEALTHCARE/MALLINCKRODT-T200901945

PATIENT
  Age: 78 Year
  Sex: Female

DRUGS (3)
  1. TEMAZEPAM [Suspect]
     Indication: INSOMNIA
     Dosage: 1/2 TABLET QHS
  2. ATIVAN [Suspect]
  3. ATENOLOL [Concomitant]

REACTIONS (2)
  - CONSTIPATION [None]
  - FALL [None]
